FAERS Safety Report 18797515 (Version 1)
Quarter: 2021Q1

REPORT INFORMATION
  Report Type: Other
  Country: CA (occurrence: CA)
  Receive Date: 20210127
  Receipt Date: 20210127
  Transmission Date: 20210419
  Serious: Yes (Hospitalization, Other)
  Sender: FDA-Public Use
  Company Number: CA-CELLTRION INC.-2021CA000733

PATIENT

DRUGS (19)
  1. ATENOLOL. [Concomitant]
     Active Substance: ATENOLOL
  2. METFORMIN HYDROCHLORIDE/SITAGLIPTIN PHOSPHATE MONOHYDRATE [Concomitant]
     Active Substance: METFORMIN HYDROCHLORIDE\SITAGLIPTIN PHOSPHATE
  3. DIPHENHYDRAMINE. [Concomitant]
     Active Substance: DIPHENHYDRAMINE
     Indication: PREMEDICATION
     Dosage: 50 MG
     Route: 048
  4. RAMIPRIL. [Concomitant]
     Active Substance: RAMIPRIL
  5. ATORVASTATIN [Concomitant]
     Active Substance: ATORVASTATIN
     Dosage: 40 MG
     Route: 065
  6. ESCITALOPRAM OXALATE. [Concomitant]
     Active Substance: ESCITALOPRAM OXALATE
  7. LYRICA [Concomitant]
     Active Substance: PREGABALIN
  8. METHYLPREDNISOLONE. [Concomitant]
     Active Substance: METHYLPREDNISOLONE
     Indication: PREMEDICATION
     Dosage: 100 MG
     Route: 042
  9. TYLENOL [Concomitant]
     Active Substance: ACETAMINOPHEN
  10. ACETAMINOPHEN. [Concomitant]
     Active Substance: ACETAMINOPHEN
     Indication: PREMEDICATION
     Dosage: 650 MG
     Route: 048
  11. ALLOPURINOL. [Concomitant]
     Active Substance: ALLOPURINOL
  12. GLICLAZIDE [Concomitant]
     Active Substance: GLICLAZIDE
  13. GRAVOL [Concomitant]
     Active Substance: DIMENHYDRINATE
     Route: 065
  14. RITUXIMAB (UNKNOWN) [Suspect]
     Active Substance: RITUXIMAB
     Indication: RHEUMATOID ARTHRITIS
     Dosage: 1000 MG
     Route: 042
  15. PANTOPRAZOLE MAGNESIUM [Concomitant]
     Active Substance: PANTOPRAZOLE MAGNESIUM
  16. CARDIZEM [DILTIAZEM HYDROCHLORIDE] [Concomitant]
     Active Substance: DILTIAZEM HYDROCHLORIDE
  17. LIRAGLUTIDE [Concomitant]
     Active Substance: LIRAGLUTIDE
  18. ACETAMINOPHEN/OXYCODONE HYDROCHLORIDE [Concomitant]
     Active Substance: ACETAMINOPHEN\OXYCODONE HYDROCHLORIDE
     Route: 065
  19. PREDNISONE. [Concomitant]
     Active Substance: PREDNISONE

REACTIONS (3)
  - Myocardial infarction [Recovered/Resolved]
  - Cardiac failure congestive [Recovered/Resolved]
  - Fatigue [Recovered/Resolved]
